FAERS Safety Report 8180649 (Version 2)
Quarter: 2013Q3

REPORT INFORMATION
  Report Type: Report from Study
  Country: US (occurrence: US)
  Receive Date: 20111014
  Receipt Date: 20130802
  Transmission Date: 20140515
  Serious: Yes (Death, Other)
  Sender: FDA-Public Use
  Company Number: US-ELI_LILLY_AND_COMPANY-US201105005624

PATIENT
  Age: 84 Year
  Sex: Female
  Weight: 44 kg

DRUGS (2)
  1. TERIPARATIDE [Suspect]
     Indication: OSTEOPOROSIS
     Dosage: 20 UG, QD
     Dates: start: 20110418
  2. TERIPARATIDE [Suspect]
     Dosage: 20 UG, QD

REACTIONS (12)
  - Lung disorder [Unknown]
  - Weight gain poor [Unknown]
  - Aphasia [Unknown]
  - Blood pressure fluctuation [Unknown]
  - Death [Fatal]
  - Large intestinal obstruction [Unknown]
  - Cerebrovascular accident [Unknown]
  - Cerebral thrombosis [Unknown]
  - Fluid retention [Unknown]
  - Blood pressure increased [Unknown]
  - Drug dose omission [Unknown]
  - Hypoacusis [Unknown]
